FAERS Safety Report 14379314 (Version 1)
Quarter: 2018Q1

REPORT INFORMATION
  Report Type: Spontaneous
  Country: US (occurrence: US)
  Receive Date: 20180112
  Receipt Date: 20180112
  Transmission Date: 20180509
  Serious: Yes (Other)
  Sender: FDA-Public Use
  Company Number: US-BIOGEN-2015BI095552

PATIENT
  Sex: Female

DRUGS (1)
  1. AVONEX [Suspect]
     Active Substance: INTERFERON BETA-1A
     Indication: MULTIPLE SCLEROSIS
     Route: 030

REACTIONS (5)
  - Meningitis [Recovered/Resolved]
  - Brain operation [Recovered/Resolved]
  - Influenza like illness [Unknown]
  - Nerve injury [Not Recovered/Not Resolved]
  - Necrosis [Not Recovered/Not Resolved]

NARRATIVE: CASE EVENT DATE: 2016
